FAERS Safety Report 4891298-4 (Version None)
Quarter: 2006Q1

REPORT INFORMATION
  Report Type: 
  Country: None (occurrence: None)
  Receive Date: 20060123
  Receipt Date: 20060119
  Transmission Date: 20060701
  Serious: Yes (Death, Hospitalization)
  Sender: FDA-Public Use
  Company Number: TCI2005A04742

PATIENT
  Age: 81 Year
  Sex: Male

DRUGS (6)
  1. LEUPLIN SR FOR INJECTION KIT [Suspect]
     Indication: METASTASES TO BONE
     Dosage: 11.25 MG (11.25 MG, 1 IN 12 WK) SUBCUTANEOUS
     Route: 058
     Dates: start: 20051104, end: 20051104
  2. LEUPLIN SR FOR INJECTION KIT [Suspect]
     Indication: PROSTATE CANCER METASTATIC
     Dosage: 11.25 MG (11.25 MG, 1 IN 12 WK) SUBCUTANEOUS
     Route: 058
     Dates: start: 20051104, end: 20051104
  3. CASODEX [Suspect]
     Indication: METASTASES TO BONE
     Dosage: 80 MG (80 MG, 1 IN 1 D) PER ORAL
     Route: 048
     Dates: start: 20051017, end: 20051118
  4. CASODEX [Suspect]
     Indication: PROSTATE CANCER METASTATIC
     Dosage: 80 MG (80 MG, 1 IN 1 D) PER ORAL
     Route: 048
     Dates: start: 20051017, end: 20051118
  5. LOXONIN                   (LOXOPROFEN SODIUM) (TABLETS) [Concomitant]
  6. SELBEX                (TEPRENONE) [Concomitant]

REACTIONS (6)
  - CARDIAC FAILURE ACUTE [None]
  - HYPOXIA [None]
  - INTERSTITIAL LUNG DISEASE [None]
  - PULMONARY OEDEMA [None]
  - RESPIRATORY FAILURE [None]
  - THERAPY NON-RESPONDER [None]
